FAERS Safety Report 15181617 (Version 1)
Quarter: 2018Q3

REPORT INFORMATION
  Report Type: Spontaneous
  Country: US (occurrence: US)
  Receive Date: 20180723
  Receipt Date: 20180723
  Transmission Date: 20181010
  Serious: No
  Sender: FDA-Public Use
  Company Number: US-AMGEN-USASP2018056985

PATIENT
  Age: 80 Year
  Sex: Female

DRUGS (1)
  1. REPATHA [Suspect]
     Active Substance: EVOLOCUMAB
     Indication: BLOOD CHOLESTEROL INCREASED
     Dosage: 140 MG, Q2WK
     Route: 065
     Dates: start: 2017

REACTIONS (13)
  - Insomnia [Unknown]
  - Pain in extremity [Recovering/Resolving]
  - Arthritis [Unknown]
  - Blood triglycerides increased [Unknown]
  - Myalgia [Unknown]
  - Fatigue [Unknown]
  - Arthralgia [Not Recovered/Not Resolved]
  - Paraesthesia [Unknown]
  - Vascular calcification [Unknown]
  - Drug dose omission [Unknown]
  - Muscular weakness [Recovering/Resolving]
  - Burning sensation [Unknown]
  - Dysstasia [Unknown]

NARRATIVE: CASE EVENT DATE: 201804
